FAERS Safety Report 20696138 (Version 2)
Quarter: 2022Q2

REPORT INFORMATION
  Report Type: Report from Study
  Country: PL (occurrence: PL)
  Receive Date: 20220411
  Receipt Date: 20220603
  Transmission Date: 20220720
  Serious: Yes (Life-Threatening, Hospitalization, Other)
  Sender: FDA-Public Use
  Company Number: PL-CELGENE-POL-20211107621

PATIENT
  Sex: Female
  Weight: 85 kg

DRUGS (4)
  1. BACLOFEN [Concomitant]
     Active Substance: BACLOFEN
     Indication: Muscle spasticity
     Dosage: 10 MILLIGRAM
     Route: 048
  2. DITROPAN [Concomitant]
     Active Substance: OXYBUTYNIN CHLORIDE
     Indication: Lower urinary tract symptoms
     Dosage: 5 MILLIGRAM
     Route: 048
  3. LOSARTAN POTASSIUM [Concomitant]
     Active Substance: LOSARTAN POTASSIUM
     Indication: Hypertension
     Dosage: 50+12.5 MILLIGRAM
     Route: 048
     Dates: start: 20170315
  4. MICROGYNON 21 [Concomitant]
     Indication: Contraception
     Dosage: 1 TABLET DOSING
     Route: 048
     Dates: start: 20171120

REACTIONS (1)
  - COVID-19 [Recovered/Resolved]

NARRATIVE: CASE EVENT DATE: 20211007
